FAERS Safety Report 12195942 (Version 1)
Quarter: 2016Q1

REPORT INFORMATION
  Report Type: Spontaneous
  Country: US (occurrence: US)
  Receive Date: 20160321
  Receipt Date: 20160321
  Transmission Date: 20160526
  Serious: No
  Sender: FDA-Public Use
  Company Number: US-ENDO PHARMACEUTICALS INC.-2015-003570

PATIENT
  Sex: Female

DRUGS (1)
  1. XIAFLEX [Suspect]
     Active Substance: COLLAGENASE CLOSTRIDIUM HISTOLYTICUM
     Indication: DUPUYTREN^S CONTRACTURE
     Dosage: 1 INJECTION IN RING FINGER AND POSSIBLY BABY FINGER OF RIGHT HAND
     Route: 026
     Dates: start: 201506

REACTIONS (4)
  - Paraesthesia [Recovered/Resolved]
  - Peripheral swelling [Recovered/Resolved]
  - Dupuytren^s contracture [Unknown]
  - Dermatitis contact [Unknown]

NARRATIVE: CASE EVENT DATE: 2015
